FAERS Safety Report 24953384 (Version 2)
Quarter: 2025Q3

REPORT INFORMATION
  Report Type: Spontaneous
  Country: JP (occurrence: JP)
  Receive Date: 20250211
  Receipt Date: 20250809
  Transmission Date: 20251021
  Serious: Yes (Other)
  Sender: ALEXION PHARMACEUTICALS
  Company Number: JP-ASTRAZENECA-220012884_013120_P_1

PATIENT
  Age: 54 Year
  Sex: Male
  Weight: 61 kg

DRUGS (4)
  1. IMFINZI [Suspect]
     Active Substance: DURVALUMAB
     Indication: Small cell lung cancer
     Dosage: 1500 MILLIGRAM, Q4W
     Dates: start: 20211108, end: 20220105
  2. CARBOPLATIN [Concomitant]
     Active Substance: CARBOPLATIN
     Indication: Small cell lung cancer
     Dosage: UNK, Q4W
     Route: 065
     Dates: start: 20211108, end: 20220105
  3. ETOPOSIDE [Concomitant]
     Active Substance: ETOPOSIDE
     Indication: Small cell lung cancer
     Dosage: ON DAY 1, 2, AND 3 OF EACH CYCLE, FREQUENCY: Q4WK
     Route: 065
     Dates: start: 20211108, end: 20220107
  4. UNSPECIFIED INGREDIENT [Concomitant]
     Active Substance: UNSPECIFIED INGREDIENT
     Indication: Febrile neutropenia
     Route: 065

REACTIONS (1)
  - Neuropathy peripheral [Unknown]
